FAERS Safety Report 8410187-1 (Version None)
Quarter: 2012Q2

REPORT INFORMATION
  Report Type: 
  Country: None (occurrence: None)
  Receive Date: 20120605
  Receipt Date: 20120530
  Transmission Date: 20120825
  Serious: Yes (Hospitalization, Other)
  Sender: FDA-Public Use
  Company Number: PHHY2012CA026066

PATIENT
  Sex: Female

DRUGS (21)
  1. SANDOSTATIN LAR [Suspect]
     Indication: ANAEMIA
     Dosage: 20 MG, QMO
     Route: 030
     Dates: start: 20090101
  2. NOVOGESIC [Concomitant]
     Dosage: UNK UKN, DAILY
  3. COLACE [Concomitant]
     Dosage: UNK UKN, UNK
  4. COUMADIN [Concomitant]
     Dosage: UNK UKN, UNK
  5. SENNA-MINT WAF [Concomitant]
     Dosage: UNK UKN, UNK
  6. FLOVENT [Concomitant]
     Dosage: UNK UKN, UNK
  7. ATIVAN [Concomitant]
     Dosage: 1 MG, UNK
  8. LASIX [Concomitant]
     Dosage: UNK UKN, UNK
  9. OSCAL 500-D [Concomitant]
     Dosage: UNK UKN, BID
  10. PANTOPRAZOLE SODIUM [Concomitant]
     Dosage: 40 MG DAILY
  11. METOPROLOL TARTRATE [Concomitant]
     Dosage: UNK UKN, UNK
  12. NITRO-DUR [Concomitant]
     Dosage: UNK UKN, UNK
  13. ALDACTONE [Concomitant]
     Dosage: UNK UKN, UNK
  14. MIRTAZAPINE [Concomitant]
     Dosage: UNK UKN, UNK (30 DAILY)
  15. DOXYCYCLINE [Concomitant]
     Dosage: 0.067 MG, UNK
  16. ATORVASTATIN CALCIUM [Concomitant]
     Dosage: UNK UKN, UNK
  17. SANDOSTATIN LAR [Suspect]
     Dosage: 30 MG, QMO
     Route: 030
  18. IRON [Concomitant]
     Dosage: UNK UKN, UNK
  19. ACTONEL [Concomitant]
     Dosage: UNK UKN, UNK
  20. PERINDOPRIL ERBUMINE [Concomitant]
     Dosage: UNK UKN, UNK
  21. ASPIRIN [Concomitant]
     Dosage: 80 MG, UNK

REACTIONS (6)
  - PULMONARY CONGESTION [None]
  - PALPITATIONS [None]
  - DYSPNOEA [None]
  - MALAISE [None]
  - MITRAL VALVE DISEASE MIXED [None]
  - GASTROENTERITIS [None]
